FAERS Safety Report 22212968 (Version 5)
Quarter: 2024Q1

REPORT INFORMATION
  Report Type: Spontaneous
  Country: US (occurrence: US)
  Receive Date: 20230414
  Receipt Date: 20240122
  Transmission Date: 20240410
  Serious: No
  Sender: FDA-Public Use
  Company Number: US-PFIZER INC-PV202300056669

PATIENT
  Age: 4 Year
  Sex: Female
  Weight: 13.605 kg

DRUGS (1)
  1. GENOTROPIN [Suspect]
     Active Substance: SOMATROPIN
     Indication: Silver-Russell syndrome
     Dosage: 0.3 MG, DAILY

REACTIONS (4)
  - Poor quality device used [Unknown]
  - Off label use [Unknown]
  - Device leakage [Unknown]
  - Device malfunction [Unknown]
